FAERS Safety Report 9326118 (Version 1)
Quarter: 2013Q2

REPORT INFORMATION
  Report Type: Spontaneous
  Country: US (occurrence: None)
  Receive Date: 20130603
  Receipt Date: 20130603
  Transmission Date: 20140414
  Serious: Yes (Other)
  Sender: FDA-Public Use
  Company Number: None

PATIENT
  Age: 17 Year
  Sex: Female
  Weight: 70 kg

DRUGS (2)
  1. PROPOFOL [Suspect]
     Indication: SEDATIVE THERAPY
     Route: 040
     Dates: start: 20130531, end: 20130531
  2. LIDOCAINE [Concomitant]

REACTIONS (2)
  - Nystagmus [None]
  - Seizure like phenomena [None]
